FAERS Safety Report 15325958 (Version 1)
Quarter: 2018Q3

REPORT INFORMATION
  Report Type: Spontaneous
  Country: AR (occurrence: AR)
  Receive Date: 20180828
  Receipt Date: 20180828
  Transmission Date: 20181010
  Serious: Yes (Other)
  Sender: FDA-Public Use
  Company Number: AR-GLAXOSMITHKLINE-AR2018GSK154267

PATIENT
  Sex: Male
  Weight: 90 kg

DRUGS (1)
  1. RELVAR ELLIPTA [Suspect]
     Active Substance: FLUTICASONE FUROATE\VILANTEROL TRIFENATATE
     Indication: ASTHMA
     Dosage: UNK

REACTIONS (8)
  - Increased bronchial secretion [Recovered/Resolved]
  - Insomnia [Recovered/Resolved]
  - Product quality issue [Unknown]
  - Dyspnoea [Recovered/Resolved]
  - Asthmatic crisis [Recovered/Resolved]
  - Agitation [Recovered/Resolved]
  - Cough [Recovered/Resolved]
  - Drug ineffective [Recovered/Resolved]
